FAERS Safety Report 5805385-7 (Version None)
Quarter: 2008Q3

REPORT INFORMATION
  Report Type: 
  Country: None (occurrence: None)
  Receive Date: 20080709
  Receipt Date: 20080709
  Transmission Date: 20090109
  Serious: Yes (Hospitalization)
  Sender: FDA-Public Use
  Company Number: None

PATIENT
  Sex: Female
  Weight: 92.3 kg

DRUGS (2)
  1. ABRAXANE [Suspect]
     Indication: ENDOMETRIAL CANCER
     Dosage: 573 MG IV Q 21 DAYS
     Route: 042
  2. VANDETANIB [Suspect]
     Indication: ENDOMETRIAL CANCER
     Dosage: 100 MG/DAY PO
     Route: 048

REACTIONS (7)
  - CULTURE URINE POSITIVE [None]
  - DIARRHOEA [None]
  - DYSURIA [None]
  - ESCHERICHIA INFECTION [None]
  - NAUSEA [None]
  - PYELONEPHRITIS [None]
  - VOMITING [None]
